FAERS Safety Report 6523052 (Version 11)
Quarter: 2013Q4

REPORT INFORMATION
  Report Type: Spontaneous
  Country: US (occurrence: US)
  Receive Date: 20080110
  Receipt Date: 20131221
  Transmission Date: 20140711
  Serious: Yes (Death, Other)
  Sender: FDA-Public Use
  Company Number: PHEH2008US00460

PATIENT
  Age: 64 Year
  Sex: Male

DRUGS (19)
  1. ZOMETA [Suspect]
     Dosage: 4 MG, QMO
     Route: 065
     Dates: start: 20050524, end: 20070425
  2. AVASTIN [Concomitant]
  3. CHEMOTHERAPEUTICS NOS [Concomitant]
  4. PRILOSEC [Concomitant]
  5. HYDROCHLOROTHIAZIDE [Concomitant]
  6. NEXAVAR [Concomitant]
  7. TOPROL XL [Concomitant]
  8. METAMUCIL [Concomitant]
  9. MS CONTIN [Concomitant]
  10. LORTAB [Concomitant]
  11. ZOCOR ^MERCK^ [Concomitant]
  12. ENTERIC ASPIRIN [Concomitant]
  13. HYDROCODONE W/ACETAMINOPHEN [Concomitant]
  14. PRED-FORTE [Concomitant]
  15. ACULAR ^ALLERGAN^ [Concomitant]
  16. SUMYCIN [Concomitant]
     Route: 048
  17. VANCENASE [Concomitant]
     Route: 045
  18. CLARITIN [Concomitant]
     Route: 048
  19. CEPHALEXIN [Concomitant]
     Route: 048

REACTIONS (35)
  - Death [Fatal]
  - Pericardial disease [Unknown]
  - Pleural effusion [Unknown]
  - Dyspnoea [Unknown]
  - Cerebrovascular accident [Unknown]
  - Cerebral atrophy [Unknown]
  - Depression [Unknown]
  - Confusional state [Unknown]
  - Osteonecrosis of jaw [Unknown]
  - Tooth infection [Unknown]
  - Bone pain [Unknown]
  - Oral pain [Unknown]
  - Bone disorder [Unknown]
  - Injury [Unknown]
  - Pain [Unknown]
  - Anxiety [Unknown]
  - Pain in jaw [Unknown]
  - Periodontal disease [Unknown]
  - Hypertension [Unknown]
  - Bone loss [Unknown]
  - Spinal osteoarthritis [Unknown]
  - Back pain [Unknown]
  - Decreased appetite [Unknown]
  - Constipation [Unknown]
  - Fatigue [Unknown]
  - Cataract [Unknown]
  - Visual acuity reduced [Unknown]
  - Tooth loss [Unknown]
  - Tooth deposit [Unknown]
  - Gingival bleeding [Unknown]
  - Dental caries [Unknown]
  - Gingival recession [Unknown]
  - Loose tooth [Unknown]
  - Discomfort [Unknown]
  - Soft tissue inflammation [Unknown]
